FAERS Safety Report 19086213 (Version 1)
Quarter: 2021Q2

REPORT INFORMATION
  Report Type: Report from Study
  Country: US (occurrence: US)
  Receive Date: 20210402
  Receipt Date: 20210402
  Transmission Date: 20210717
  Serious: Yes (Hospitalization, Other)
  Sender: FDA-Public Use
  Company Number: US-B.I. PHARMACEUTICALS,INC./RIDGEFIELD-2020-MR-021395

PATIENT
  Age: 77 Year
  Sex: Male

DRUGS (1)
  1. OFEV [Suspect]
     Active Substance: NINTEDANIB
     Indication: PRODUCT USED FOR UNKNOWN INDICATION
     Dosage: 150 MGS BID
     Route: 048
     Dates: start: 20180304, end: 20210319

REACTIONS (12)
  - Vascular graft [Unknown]
  - Pneumonia [Recovered/Resolved with Sequelae]
  - Diarrhoea [Recovered/Resolved]
  - COVID-19 [Recovered/Resolved with Sequelae]
  - Gait disturbance [Recovering/Resolving]
  - Limb injury [Not Recovered/Not Resolved]
  - Cardiac failure congestive [Not Recovered/Not Resolved]
  - Asthenia [Recovering/Resolving]
  - Pulmonary function test decreased [Not Recovered/Not Resolved]
  - Hepatic enzyme increased [Unknown]
  - Coronary artery disease [Unknown]
  - Vascular graft [Unknown]

NARRATIVE: CASE EVENT DATE: 2020
